FAERS Safety Report 9452798 (Version 1)
Quarter: 2013Q3

REPORT INFORMATION
  Report Type: Report from Study
  Country: BR (occurrence: BR)
  Receive Date: 20130812
  Receipt Date: 20130812
  Transmission Date: 20140515
  Serious: Yes (Other)
  Sender: FDA-Public Use
  Company Number: PHHY2013BR085795

PATIENT
  Sex: Male

DRUGS (6)
  1. LEPONEX [Suspect]
     Indication: BIPOLAR DISORDER
     Dosage: 200 MG, QD
     Dates: start: 20060626
  2. LEPONEX [Suspect]
     Dosage: 4 DF, QD
  3. MELLARIL [Suspect]
     Dosage: UNK UKN, UNK
  4. RISPERIDONE [Suspect]
     Dosage: UNK UKN, UNK
  5. SEROQUEL [Suspect]
     Dosage: UNK UKN, UNK
  6. SAPHRIS [Suspect]
     Dosage: UNK UKN, UNK

REACTIONS (8)
  - Suicide attempt [Recovering/Resolving]
  - Hallucination [Recovering/Resolving]
  - Insomnia [Recovering/Resolving]
  - Dysuria [Recovering/Resolving]
  - Drooling [Recovering/Resolving]
  - Dysphonia [Recovering/Resolving]
  - Abnormal behaviour [Recovering/Resolving]
  - Muscular weakness [Recovering/Resolving]
